FAERS Safety Report 9548011 (Version 1)
Quarter: 2013Q3

REPORT INFORMATION
  Report Type: Spontaneous
  Country: US (occurrence: US)
  Receive Date: 20130924
  Receipt Date: 20130924
  Transmission Date: 20140515
  Serious: No
  Sender: FDA-Public Use
  Company Number: US-PURDUE-USA-2011-0070229

PATIENT
  Sex: Female

DRUGS (3)
  1. MORPHINE SULFATE EXTENDED-RELEASE TABLETS (RHODES 74-862) [Suspect]
     Indication: PRODUCT USED FOR UNKNOWN INDICATION
     Dosage: 60 MG, Q12H
     Route: 048
     Dates: start: 20110602, end: 20110603
  2. MORPHINE SULFATE [Concomitant]
     Indication: PAIN
     Dosage: 15 MG, Q4- 6H PRN
     Route: 048
  3. AMBIEN [Concomitant]

REACTIONS (5)
  - Drug hypersensitivity [Recovering/Resolving]
  - Erythema [Recovered/Resolved]
  - Dyspnoea [Recovering/Resolving]
  - Urticaria [Recovering/Resolving]
  - Pruritus [Recovering/Resolving]
